FAERS Safety Report 13765970 (Version 1)
Quarter: 2017Q3

REPORT INFORMATION
  Report Type: Spontaneous
  Country: US (occurrence: US)
  Receive Date: 20170718
  Receipt Date: 20170718
  Transmission Date: 20171127
  Serious: Yes (Other)
  Sender: FDA-Public Use
  Company Number: US-AMGEN-USASP2017106898

PATIENT
  Age: 60 Year
  Sex: Female

DRUGS (3)
  1. ENBREL [Suspect]
     Active Substance: ETANERCEPT
     Indication: PRODUCT USED FOR UNKNOWN INDICATION
     Dosage: UNK
     Route: 065
  2. METHOTREXATE. [Suspect]
     Active Substance: METHOTREXATE
     Indication: PRODUCT USED FOR UNKNOWN INDICATION
     Route: 065
  3. NEURONTIN [Suspect]
     Active Substance: GABAPENTIN
     Indication: PRODUCT USED FOR UNKNOWN INDICATION
     Dosage: UNK
     Route: 065

REACTIONS (24)
  - Blood potassium increased [Unknown]
  - Pain in extremity [Unknown]
  - Foot deformity [Unknown]
  - Malaise [Unknown]
  - Gastric ulcer [Unknown]
  - Oesophageal ulcer [Unknown]
  - Multiple sclerosis [Unknown]
  - Hepatic steatosis [Unknown]
  - Rash [Unknown]
  - Hand deformity [Unknown]
  - Dermatitis herpetiformis [Unknown]
  - Glomerular filtration rate decreased [Unknown]
  - Infection [Unknown]
  - Abdominal discomfort [Unknown]
  - Joint swelling [Unknown]
  - Muscular weakness [Unknown]
  - Blood calcium increased [Unknown]
  - Urinary tract infection [Recovered/Resolved]
  - Xerophthalmia [Unknown]
  - Arthralgia [Unknown]
  - Musculoskeletal stiffness [Unknown]
  - Back pain [Unknown]
  - Fatigue [Unknown]
  - Dry mouth [Unknown]

NARRATIVE: CASE EVENT DATE: 201607
